FAERS Safety Report 4354700-2 (Version None)
Quarter: 2004Q2

REPORT INFORMATION
  Report Type: 
  Country: None (occurrence: None)
  Receive Date: 20040503
  Receipt Date: 20040422
  Transmission Date: 20050107
  Serious: Yes (Hospitalization)
  Sender: FDA-Public Use
  Company Number: 03P-163-0237756-00

PATIENT
  Age: 52 Year
  Sex: Female

DRUGS (5)
  1. NORVIR [Suspect]
     Indication: HIV INFECTION
     Dosage: 2 IN 1 D, PER ORAL
     Route: 048
     Dates: start: 20030828
  2. TIPRANAVIR [Concomitant]
  3. DIDANOSINE [Concomitant]
  4. VIREAD [Concomitant]
  5. KALETRA [Concomitant]

REACTIONS (2)
  - ARTHRALGIA [None]
  - PROTEIN TOTAL INCREASED [None]
